FAERS Safety Report 11069282 (Version 1)
Quarter: 2015Q2

REPORT INFORMATION
  Report Type: Spontaneous
  Country: US (occurrence: US)
  Receive Date: 20150427
  Receipt Date: 20150427
  Transmission Date: 20150821
  Serious: No
  Sender: FDA-Public Use
  Company Number: US-009507513-1504USA020941

PATIENT
  Age: 55 Year
  Sex: Female
  Weight: 75 kg

DRUGS (2)
  1. SYNTHROID [Concomitant]
     Active Substance: LEVOTHYROXINE SODIUM
     Dosage: UNK
  2. COPPERTONE [Suspect]
     Active Substance: OCTINOXATE\OCTOCRYLENE
     Indication: SUNBURN
     Dosage: 1 DOSE, ONCE
     Route: 061
     Dates: start: 20150416, end: 20150416

REACTIONS (1)
  - Rash generalised [Not Recovered/Not Resolved]

NARRATIVE: CASE EVENT DATE: 20150416
